FAERS Safety Report 4707193-7 (Version None)
Quarter: 2005Q3

REPORT INFORMATION
  Report Type: 
  Country: None (occurrence: None)
  Receive Date: 20050701
  Receipt Date: 20050615
  Transmission Date: 20060218
  Serious: Yes (Hospitalization)
  Sender: FDA-Public Use
  Company Number: B0381168A

PATIENT
  Age: 11 Year
  Sex: Female

DRUGS (1)
  1. ALBENZA [Suspect]
     Dosage: 400 MG/ SINGLE DOSE
     Route: 048
     Dates: start: 19940706

REACTIONS (7)
  - FACE OEDEMA [None]
  - GINGIVAL BLEEDING [None]
  - GINGIVAL OEDEMA [None]
  - HENOCH-SCHONLEIN PURPURA [None]
  - PETECHIAE [None]
  - PLATELET COUNT DECREASED [None]
  - STOOL ANALYSIS ABNORMAL [None]
